FAERS Safety Report 5300072-6 (Version None)
Quarter: 2007Q2

REPORT INFORMATION
  Report Type: 
  Country: None (occurrence: None)
  Receive Date: 20070410
  Receipt Date: 20070330
  Transmission Date: 20071010
  Serious: Yes (Other)
  Sender: FDA-Public Use
  Company Number: 100#03#2007-01012

PATIENT
  Age: 54 Year
  Sex: Female

DRUGS (2)
  1. CITALOPRAM HYDROBROMIDE [Suspect]
     Indication: DEPRESSION
     Dosage: APP. 30 TABLETS OF 20 MG ORAL
     Route: 048
  2. PREMPAK-C (PREMPAK /OLD FORM/) (ESTROGENS) [Concomitant]

REACTIONS (9)
  - ALCOHOL POISONING [None]
  - ANGLE CLOSURE GLAUCOMA [None]
  - CORNEAL OEDEMA [None]
  - DEPRESSED MOOD [None]
  - OVERDOSE [None]
  - PUPIL FIXED [None]
  - RETINAL HAEMORRHAGE [None]
  - SUICIDAL IDEATION [None]
  - VITREOUS HAEMORRHAGE [None]
